FAERS Safety Report 8424289-7 (Version None)
Quarter: 2012Q2

REPORT INFORMATION
  Report Type: 
  Country: None (occurrence: None)
  Receive Date: 20120608
  Receipt Date: 20111024
  Transmission Date: 20120825
  Serious: No
  Sender: FDA-Public Use
  Company Number: US-ASTRAZENECA-2011SE63965

PATIENT
  Age: 79 Year
  Sex: Male
  Weight: 79.4 kg

DRUGS (1)
  1. PULMICORT FLEXHALER [Suspect]
     Indication: COUGH
     Dosage: AS NEEDED
     Route: 055
     Dates: start: 20111001

REACTIONS (3)
  - OFF LABEL USE [None]
  - DRUG INEFFECTIVE FOR UNAPPROVED INDICATION [None]
  - COUGH [None]
